FAERS Safety Report 13840448 (Version 2)
Quarter: 2017Q3

REPORT INFORMATION
  Report Type: Spontaneous
  Country: JP (occurrence: JP)
  Receive Date: 20170807
  Receipt Date: 20170810
  Transmission Date: 20171127
  Serious: Yes (Death)
  Sender: FDA-Public Use
  Company Number: JP-PURDUE-GBR-2017-0047523

PATIENT
  Sex: Male

DRUGS (2)
  1. OXYCONTIN [Suspect]
     Active Substance: OXYCODONE HYDROCHLORIDE
     Indication: CANCER PAIN
     Dosage: 40 MG, DAILY
     Route: 048
     Dates: start: 201705, end: 20170728
  2. SYMPROIC [Concomitant]
     Active Substance: NALDEMEDINE
     Indication: CONSTIPATION
     Dosage: UNK
     Route: 048
     Dates: start: 20170727

REACTIONS (2)
  - Constipation [Recovering/Resolving]
  - Lung neoplasm malignant [Fatal]

NARRATIVE: CASE EVENT DATE: 201705
